FAERS Safety Report 4417184-1 (Version None)
Quarter: 2004Q3

REPORT INFORMATION
  Report Type: 
  Country: None (occurrence: None)
  Receive Date: 20040802
  Receipt Date: 20040719
  Transmission Date: 20050211
  Serious: Yes (Hospitalization)
  Sender: FDA-Public Use
  Company Number: HQWYE943808JUL04

PATIENT
  Age: 46 Year
  Sex: Male
  Weight: 69 kg

DRUGS (14)
  1. RAPAMUNE [Suspect]
     Indication: PROPHYLAXIS AGAINST TRANSPLANT REJECTION
     Dosage: SEE IMAGE
     Route: 048
     Dates: start: 20040203, end: 20040703
  2. RAPAMUNE [Suspect]
     Indication: PROPHYLAXIS AGAINST TRANSPLANT REJECTION
     Dosage: SEE IMAGE
     Route: 048
     Dates: start: 20040701
  3. LASIX [Concomitant]
  4. CLONIDINE [Concomitant]
  5. PREDNISONE [Concomitant]
  6. PREDNISONE [Concomitant]
  7. PROGRAF [Concomitant]
  8. BACTRIM [Concomitant]
  9. LIPITOR [Concomitant]
  10. COZAAR [Concomitant]
  11. COZAAR [Concomitant]
  12. DOXAZOSIN (DOXAZOSIN) [Concomitant]
  13. LABETATOL (LABETATOL) [Concomitant]
  14. HUMULIN (INSULIN HUMAN) [Concomitant]

REACTIONS (14)
  - BACK PAIN [None]
  - BLOOD CHLORIDE INCREASED [None]
  - BLOOD CREATININE INCREASED [None]
  - BLOOD POTASSIUM DECREASED [None]
  - BLOOD SODIUM DECREASED [None]
  - BLOOD UREA INCREASED [None]
  - GLUCOSE URINE PRESENT [None]
  - HAEMATURIA [None]
  - MENINGITIS ASEPTIC [None]
  - MENINGITIS BACTERIAL [None]
  - PCO2 DECREASED [None]
  - PROTEIN URINE PRESENT [None]
  - URINE KETONE BODY PRESENT [None]
  - WEST NILE VIRAL INFECTION [None]
